FAERS Safety Report 15740118 (Version 1)
Quarter: 2018Q4

REPORT INFORMATION
  Report Type: Spontaneous
  Country: US (occurrence: US)
  Receive Date: 20181219
  Receipt Date: 20181219
  Transmission Date: 20190205
  Serious: No
  Sender: FDA-Public Use
  Company Number: US-SA-2018SA341129

PATIENT
  Age: 30 Year
  Sex: Female

DRUGS (1)
  1. GOLD BOND ULTIMATE ECZEMA RELIEF [Suspect]
     Active Substance: OATMEAL
     Indication: ECZEMA
     Dosage: EVERY15 MIN

REACTIONS (1)
  - Drug ineffective [Unknown]

NARRATIVE: CASE EVENT DATE: 20181205
